FAERS Safety Report 5039120-X (Version None)
Quarter: 2006Q2

REPORT INFORMATION
  Report Type: 
  Country: None (occurrence: None)
  Receive Date: 20060629
  Receipt Date: 20060421
  Transmission Date: 20061013
  Serious: Yes (Hospitalization, Disabling)
  Sender: FDA-Public Use
  Company Number: GBWYE141015NOV05

PATIENT
  Sex: Female
  Weight: 67 kg

DRUGS (10)
  1. ENBREL [Suspect]
     Indication: RHEUMATOID ARTHRITIS
     Route: 058
     Dates: start: 20050323, end: 20050419
  2. PREDNISOLONE [Concomitant]
     Dosage: UNKNOWN
  3. ACTONEL [Concomitant]
     Dosage: UNKNOWN
  4. CO-PROXAMOL [Concomitant]
     Dosage: AS REQUIRED
     Route: 048
  5. GLUCOSAMINE [Concomitant]
     Dosage: UNKNOWN
  6. PARACETAMOL [Concomitant]
     Dosage: UNKNOWN
  7. VOLTAREN [Concomitant]
     Dosage: UNKNOWN
  8. CITALOPRAM [Concomitant]
     Indication: DEPRESSION
     Route: 048
     Dates: start: 20060401
  9. METHOTREXATE [Concomitant]
     Indication: RHEUMATOID ARTHRITIS
     Route: 048
     Dates: start: 20030101
  10. FOLIC ACID [Concomitant]
     Indication: RHEUMATOID ARTHRITIS
     Route: 048
     Dates: start: 20030101

REACTIONS (2)
  - GUILLAIN-BARRE SYNDROME [None]
  - URINARY TRACT INFECTION [None]
